FAERS Safety Report 6396439-8 (Version None)
Quarter: 2009Q4

REPORT INFORMATION
  Report Type: 
  Country: None (occurrence: None)
  Receive Date: 20091012
  Receipt Date: 20091003
  Transmission Date: 20100525
  Serious: Yes (Hospitalization)
  Sender: FDA-Public Use
  Company Number: NL-JNJFOC-20091001398

PATIENT
  Sex: Male
  Weight: 70 kg

DRUGS (3)
  1. REMINYL [Suspect]
     Route: 065
  2. REMINYL [Suspect]
     Route: 065
  3. REMINYL [Suspect]
     Indication: DRUG USE FOR UNKNOWN INDICATION
     Route: 065

REACTIONS (14)
  - ABDOMINAL TENDERNESS [None]
  - BODY TEMPERATURE DECREASED [None]
  - COMA [None]
  - CONFUSIONAL STATE [None]
  - DIARRHOEA [None]
  - DIZZINESS [None]
  - DYSPNOEA [None]
  - FLUID RETENTION [None]
  - HEART RATE DECREASED [None]
  - HEART RATE IRREGULAR [None]
  - MUSCULAR WEAKNESS [None]
  - OVERDOSE [None]
  - PARAESTHESIA [None]
  - RHINORRHOEA [None]
